FAERS Safety Report 15960037 (Version 1)
Quarter: 2019Q1

REPORT INFORMATION
  Report Type: Spontaneous
  Country: US (occurrence: US)
  Receive Date: 20190214
  Receipt Date: 20190214
  Transmission Date: 20190417
  Serious: No
  Sender: FDA-Public Use
  Company Number: US-ROCHE-2130248

PATIENT
  Age: 68 Year
  Sex: Male
  Weight: 69.01 kg

DRUGS (7)
  1. VITAMIN D3 [Concomitant]
     Active Substance: CHOLECALCIFEROL
     Dosage: ONGOING: YES
     Route: 065
  2. LOSARTAN/HCTZ [Concomitant]
     Active Substance: HYDROCHLOROTHIAZIDE\LOSARTAN
     Indication: HYPERTENSION
     Dosage: 100-12.5 MG ;ONGOING: YES
     Route: 065
  3. MONTELUKAST [Concomitant]
     Active Substance: MONTELUKAST SODIUM
     Indication: ASTHMA
  4. TYLENOL [Concomitant]
     Active Substance: ACETAMINOPHEN
     Dosage: ONGOING: UNKNOWN
     Route: 065
  5. ERIVEDGE [Suspect]
     Active Substance: VISMODEGIB
     Dosage: 1 PILL FOR 10 DAYS A MONTH ;ONGOING: YES
     Route: 048
     Dates: start: 20180419
  6. MONTELUKAST [Concomitant]
     Active Substance: MONTELUKAST SODIUM
     Indication: HYPERSENSITIVITY
     Dosage: ONGOING: YES
     Route: 065
  7. ERIVEDGE [Suspect]
     Active Substance: VISMODEGIB
     Indication: BASAL CELL CARCINOMA
     Route: 048
     Dates: start: 201711, end: 20180419

REACTIONS (11)
  - Dysgeusia [Unknown]
  - Back pain [Unknown]
  - Malaise [Unknown]
  - Decreased appetite [Unknown]
  - Alopecia [Unknown]
  - Vomiting [Unknown]
  - Pain [Unknown]
  - Orthopnoea [Unknown]
  - Muscle spasms [Unknown]
  - Constipation [Unknown]
  - Weight decreased [Unknown]

NARRATIVE: CASE EVENT DATE: 20180518
